FAERS Safety Report 18175897 (Version 1)
Quarter: 2020Q3

REPORT INFORMATION
  Report Type: Spontaneous
  Country: US (occurrence: US)
  Receive Date: 20200820
  Receipt Date: 20200820
  Transmission Date: 20201103
  Serious: No
  Sender: FDA-Public Use
  Company Number: US-AMGEN-USASP2020130269

PATIENT
  Age: 58 Year
  Sex: Male

DRUGS (8)
  1. CALCITONIN [Concomitant]
     Active Substance: CALCITONIN
     Route: 058
  2. CINACALCET HCL [Suspect]
     Active Substance: CINACALCET HYDROCHLORIDE
     Indication: HYPERCALCAEMIA OF MALIGNANCY
     Dosage: 30 MILLIGRAM, BID
     Route: 048
  3. PREDNISONE. [Concomitant]
     Active Substance: PREDNISONE
     Dosage: 40 MILLIGRAM, QD
  4. CINACALCET HCL [Suspect]
     Active Substance: CINACALCET HYDROCHLORIDE
     Dosage: 60 MILLIGRAM, BID
     Route: 048
  5. SUNITINIB [Concomitant]
     Active Substance: SUNITINIB
  6. PREDNISONE. [Concomitant]
     Active Substance: PREDNISONE
     Dosage: 40 MILLIGRAM, QD
  7. CINACALCET HCL [Suspect]
     Active Substance: CINACALCET HYDROCHLORIDE
     Dosage: 30 MILLIGRAM, BID
     Route: 048
  8. XGEVA [Suspect]
     Active Substance: DENOSUMAB
     Indication: HYPERCALCAEMIA OF MALIGNANCY
     Dosage: UNK
     Route: 058

REACTIONS (3)
  - Hypercalcaemia of malignancy [Recovered/Resolved]
  - Drug ineffective [Unknown]
  - Off label use [Unknown]
